FAERS Safety Report 9432037 (Version 1)
Quarter: 2013Q3

REPORT INFORMATION
  Report Type: Report from Study
  Country: US (occurrence: US)
  Receive Date: 20130731
  Receipt Date: 20130731
  Transmission Date: 20140515
  Serious: Yes (Hospitalization)
  Sender: FDA-Public Use
  Company Number: US-MERCK-1307USA014600

PATIENT
  Age: 66 Year
  Sex: Female

DRUGS (41)
  1. ZOLINZA [Suspect]
     Indication: ACUTE MYELOID LEUKAEMIA
     Dosage: 400 MG, QD
     Route: 048
     Dates: start: 20120723, end: 20120731
  2. MYLOTARG [Suspect]
     Indication: ACUTE MYELOID LEUKAEMIA
     Dosage: 5 MG, UNK
     Route: 042
     Dates: start: 20120726, end: 20120726
  3. MYLOTARG [Suspect]
     Dosage: 5 MG, UNK
     Route: 042
     Dates: start: 20120730, end: 20120730
  4. VIDAZA [Suspect]
     Indication: ACUTE MYELOID LEUKAEMIA
     Dosage: 125 MG, UNK
     Route: 042
     Dates: start: 20120726, end: 20120729
  5. FUROSEMIDE [Concomitant]
     Dosage: UNK
  6. OXYGEN [Concomitant]
     Dosage: UNK
  7. AMBISOME [Concomitant]
     Dosage: UNK
  8. POTASSIUM CHLORIDE [Concomitant]
     Dosage: UNK
  9. POTASSIUM CHLORIDE [Concomitant]
     Dosage: UNK
     Dates: start: 20120910
  10. SPIRONOLACTONE [Concomitant]
     Dosage: UNK
  11. BENTYL [Concomitant]
     Dosage: UNK
     Dates: start: 20120911
  12. ALBUTEROL SULFATE [Concomitant]
     Dosage: UNK
     Dates: start: 20120911
  13. AMIODARONE [Concomitant]
     Dosage: UNK
  14. HYDROCHLORTHIAZID [Concomitant]
     Dosage: UNK
     Dates: start: 20120911
  15. LEVOTHYROXINE SODIUM [Concomitant]
     Dosage: UNK
     Dates: start: 20120911
  16. LIDOCAINE [Concomitant]
     Dosage: UNK
     Dates: start: 20120911
  17. LIOTHYRONINE SODIUM [Concomitant]
     Dosage: UNK
     Dates: start: 20120911
  18. PANTOPRAZOLE [Concomitant]
     Dosage: UNK
     Dates: start: 20120911
  19. ONDANSETRON [Concomitant]
     Dosage: UNK
     Dates: start: 20120911
  20. ADVAIR [Concomitant]
     Dosage: UNK
     Dates: start: 20120911
  21. MAGNESIUM SULFATE [Concomitant]
     Dosage: UNK
     Dates: start: 20120910
  22. FAMOTIDINE [Concomitant]
     Dosage: UNK
  23. MORPHINE [Concomitant]
     Dosage: UNK
  24. AMPHOTERICIN B [Concomitant]
     Dosage: UNK
  25. CASPOFUNGIN ACETATE [Concomitant]
     Dosage: UNK
  26. LISINOPRIL [Concomitant]
     Dosage: UNK
  27. POSACONAZOLE [Concomitant]
     Dosage: UNK
  28. AZELASTINE HYDROCHLORIDE [Concomitant]
     Dosage: UNK
  29. CETRIZINE [Concomitant]
     Dosage: UNK
  30. CLOTRIMAZOLE [Concomitant]
     Dosage: UNK
  31. HEPARIN [Concomitant]
     Dosage: UNK
  32. SYNTHYROID [Concomitant]
     Dosage: UNK
  33. MOMETASONE FUROATE [Concomitant]
     Dosage: UNK
  34. HYDROXYZINE [Concomitant]
     Dosage: UNK
  35. CHOLECALCIFEROL [Concomitant]
     Dosage: UNK
  36. CALCIUM CITRATE [Concomitant]
     Dosage: UNK
  37. LORAZEPAM [Concomitant]
     Dosage: UNK
  38. TYLENOL [Concomitant]
     Dosage: UNK
  39. TRAZODONE HYDROCHLORIDE [Concomitant]
     Dosage: UNK
  40. VITAMINS (UNSPECIFIED) [Concomitant]
     Dosage: UNK
  41. ACETAMINOPHEN [Concomitant]
     Dosage: UNK

REACTIONS (1)
  - Cardiac failure congestive [Recovered/Resolved]
